FAERS Safety Report 24288444 (Version 1)
Quarter: 2024Q3

REPORT INFORMATION
  Report Type: Report from Study
  Country: US (occurrence: US)
  Receive Date: 20240906
  Receipt Date: 20240906
  Transmission Date: 20241017
  Serious: No
  Sender: ASTELLAS
  Company Number: US-ASTELLAS-2024US022132

PATIENT

DRUGS (1)
  1. AVACINCAPTAD PEGOL [Suspect]
     Active Substance: AVACINCAPTAD PEGOL
     Indication: Dry age-related macular degeneration
     Dosage: 2 MG, OTHER (Q28 DAYS) (1ML OF 20MG/ML) (SERIAL NUMBER: 31456491775699)

REACTIONS (2)
  - Intercepted product preparation error [Unknown]
  - Needle issue [Unknown]
